FAERS Safety Report 14837198 (Version 1)
Quarter: 2018Q2

REPORT INFORMATION
  Report Type: Spontaneous
  Country: JP (occurrence: JP)
  Receive Date: 20180502
  Receipt Date: 20180502
  Transmission Date: 20180711
  Serious: Yes (Hospitalization, Other)
  Sender: FDA-Public Use
  Company Number: JP-BAYER-2018-077816

PATIENT
  Sex: Female

DRUGS (2)
  1. XARELTO [Interacting]
     Active Substance: RIVAROXABAN
     Indication: DEEP VEIN THROMBOSIS
     Dosage: UNK, QD
     Route: 048
     Dates: start: 201802
  2. BAYASPIRIN 100 MG [Suspect]
     Active Substance: ASPIRIN

REACTIONS (4)
  - Metrorrhagia [Unknown]
  - Labelled drug-drug interaction medication error [Unknown]
  - Uterine cancer [Unknown]
  - Drug administration error [Unknown]

NARRATIVE: CASE EVENT DATE: 201803
